FAERS Safety Report 23949795 (Version 1)
Quarter: 2024Q2

REPORT INFORMATION
  Report Type: Spontaneous
  Country: US (occurrence: None)
  Receive Date: 20240606
  Receipt Date: 20240606
  Transmission Date: 20240715
  Serious: Yes (Hospitalization)
  Sender: FDA-Public Use
  Company Number: None

PATIENT
  Age: 49 Year
  Sex: Male
  Weight: 127 kg

DRUGS (1)
  1. IMATINIB [Suspect]
     Active Substance: IMATINIB
     Indication: Chronic myeloid leukaemia
     Dosage: 400 MG TWICE A DAY ORAL
     Route: 048
     Dates: start: 20240403, end: 20240604

REACTIONS (5)
  - Arthralgia [None]
  - Gingival swelling [None]
  - Gingival bleeding [None]
  - Gingival discomfort [None]
  - Gingival discolouration [None]

NARRATIVE: CASE EVENT DATE: 20240604
